FAERS Safety Report 7537220-3 (Version None)
Quarter: 2011Q2

REPORT INFORMATION
  Report Type: 
  Country: None (occurrence: None)
  Receive Date: 20110609
  Receipt Date: 20110607
  Transmission Date: 20111010
  Serious: Yes (Hospitalization, Other)
  Sender: FDA-Public Use
  Company Number: US-ABBOTT-11P-163-0696530-00

PATIENT
  Sex: Female

DRUGS (9)
  1. HUMIRA [Suspect]
     Indication: PSORIASIS
  2. STELARA [Suspect]
     Indication: PSORIASIS
     Route: 058
     Dates: start: 20100126
  3. PRILOSEC [Concomitant]
     Indication: PRODUCT USED FOR UNKNOWN INDICATION
  4. LEXAPRO [Concomitant]
     Indication: PRODUCT USED FOR UNKNOWN INDICATION
  5. VIVELLE [Concomitant]
     Indication: PRODUCT USED FOR UNKNOWN INDICATION
  6. STELARA [Suspect]
     Dates: start: 20100223
  7. ENBREL [Suspect]
     Indication: ILL-DEFINED DISORDER
  8. VOLTAREN [Concomitant]
     Indication: PRODUCT USED FOR UNKNOWN INDICATION
  9. CYCLOSPORINE [Concomitant]
     Indication: PRODUCT USED FOR UNKNOWN INDICATION

REACTIONS (15)
  - DYSARTHRIA [None]
  - GAIT DISTURBANCE [None]
  - WALKING AID USER [None]
  - DEPRESSION [None]
  - VISUAL FIELD DEFECT [None]
  - VIITH NERVE PARALYSIS [None]
  - ENCEPHALOPATHY [None]
  - BLINDNESS [None]
  - SPEECH DISORDER [None]
  - DYSGRAPHIA [None]
  - ASTHENIA [None]
  - DEMYELINATION [None]
  - ANXIETY [None]
  - ACTIVITIES OF DAILY LIVING IMPAIRED [None]
  - CONFUSIONAL STATE [None]
